FAERS Safety Report 4856772-5 (Version None)
Quarter: 2005Q4

REPORT INFORMATION
  Report Type: 
  Country: None (occurrence: None)
  Receive Date: 20051219
  Receipt Date: 20050121
  Transmission Date: 20060501
  Serious: No
  Sender: FDA-Public Use
  Company Number: US-GLAXOSMITHKLINE-A0541677A

PATIENT
  Age: 40 Year
  Sex: Female

DRUGS (2)
  1. NICODERM CQ [Suspect]
     Indication: DRUG WITHDRAWAL MAINTENANCE THERAPY
  2. NICODERM CQ [Suspect]
     Indication: DRUG WITHDRAWAL MAINTENANCE THERAPY

REACTIONS (6)
  - APPLICATION SITE ERYTHEMA [None]
  - APPLICATION SITE IRRITATION [None]
  - APPLICATION SITE PARAESTHESIA [None]
  - APPLICATION SITE PERSPIRATION [None]
  - APPLICATION SITE PRURITUS [None]
  - INTENTIONAL DRUG MISUSE [None]
